FAERS Safety Report 8282394-2 (Version None)
Quarter: 2012Q2

REPORT INFORMATION
  Report Type: 
  Country: None (occurrence: None)
  Receive Date: 20120413
  Receipt Date: 20120408
  Transmission Date: 20120825
  Serious: Yes (Hospitalization)
  Sender: FDA-Public Use
  Company Number: US-UCBSA-054893

PATIENT
  Age: 50 Year
  Sex: Male
  Weight: 78.9 kg

DRUGS (4)
  1. HYDROCHLOROTHIAZIDE [Concomitant]
  2. WELLBUTRIN [Concomitant]
  3. NEURONTIN [Concomitant]
  4. CIMZIA [Suspect]
     Indication: CROHN'S DISEASE
     Route: 058
     Dates: start: 20090630, end: 20120308

REACTIONS (1)
  - PELVIC ABSCESS [None]
